FAERS Safety Report 11425169 (Version 1)
Quarter: 2015Q3

REPORT INFORMATION
  Report Type: Spontaneous
  Country: US (occurrence: US)
  Receive Date: 20150821
  Receipt Date: 20150821
  Transmission Date: 20151125
  Serious: No
  Sender: FDA-Public Use
  Company Number: US-ELI_LILLY_AND_COMPANY-US201302009797

PATIENT
  Sex: Female

DRUGS (4)
  1. NOVOLIN N [Concomitant]
     Active Substance: INSULIN HUMAN
     Dosage: UNK
  2. HUMULIN N [Suspect]
     Active Substance: INSULIN HUMAN
     Indication: INSULIN-REQUIRING TYPE 2 DIABETES MELLITUS
     Dosage: 100 U, EACH MORNING
     Dates: start: 201302
  3. HUMULIN N [Suspect]
     Active Substance: INSULIN HUMAN
     Dosage: 100 U, EACH EVENING
     Dates: start: 201302
  4. HUMULIN N [Suspect]
     Active Substance: INSULIN HUMAN
     Dosage: 50 U, QD
     Dates: start: 201302

REACTIONS (1)
  - Blood glucose increased [Unknown]
